FAERS Safety Report 17711282 (Version 1)
Quarter: 2020Q2

REPORT INFORMATION
  Report Type: Spontaneous
  Country: US (occurrence: US)
  Receive Date: 20200427
  Receipt Date: 20200427
  Transmission Date: 20200714
  Serious: No
  Sender: FDA-Public Use
  Company Number: US-PFIZER INC-2020167773

PATIENT
  Sex: Female

DRUGS (2)
  1. CELEBREX [Suspect]
     Active Substance: CELECOXIB
     Indication: BACK PAIN
     Dosage: UNK, ONCE A DAY
  2. CELEBREX [Suspect]
     Active Substance: CELECOXIB
     Dosage: UNK, TWO TIMES A DAY

REACTIONS (1)
  - Blood calcium increased [Unknown]
